FAERS Safety Report 22818140 (Version 6)
Quarter: 2023Q4

REPORT INFORMATION
  Report Type: Report from Study
  Country: US (occurrence: US)
  Receive Date: 20230814
  Receipt Date: 20231215
  Transmission Date: 20240110
  Serious: Yes (Other)
  Sender: FDA-Public Use
  Company Number: US-ACADIA PHARMACEUTICALS INC.-ACA-2023-TRF-003076

PATIENT
  Sex: Female
  Weight: 41.723 kg

DRUGS (8)
  1. DAYBUE [Suspect]
     Active Substance: TROFINETIDE
     Indication: Rett syndrome
     Dosage: 50 MILLILITER, BID
     Route: 048
     Dates: start: 20230630
  2. EPIDIOLEX [Suspect]
     Active Substance: CANNABIDIOL
  3. KEPPRA [Concomitant]
     Active Substance: LEVETIRACETAM
  4. TOPIRAMATE [Concomitant]
     Active Substance: TOPIRAMATE
  5. NORETHINDRONE ACETATE [Concomitant]
     Active Substance: NORETHINDRONE ACETATE
  6. CETIRIZINE [Concomitant]
     Active Substance: CETIRIZINE HYDROCHLORIDE
  7. IBUPROFEN [Concomitant]
     Active Substance: IBUPROFEN
  8. DEBROX [CELECOXIB] [Concomitant]
     Dosage: OTIC SOLUTION 6.5 %

REACTIONS (5)
  - Myoclonic epilepsy [Not Recovered/Not Resolved]
  - Constipation [Unknown]
  - Diarrhoea [Not Recovered/Not Resolved]
  - Diarrhoea [Not Recovered/Not Resolved]
  - Diarrhoea [Not Recovered/Not Resolved]
